FAERS Safety Report 5091891-2 (Version None)
Quarter: 2006Q3

REPORT INFORMATION
  Report Type: 
  Country: None (occurrence: None)
  Receive Date: 20060825
  Receipt Date: 20060812
  Transmission Date: 20061208
  Serious: Yes (Other)
  Sender: FDA-Public Use
  Company Number: 2006095185

PATIENT
  Sex: Male

DRUGS (1)
  1. XALATAN [Suspect]
     Indication: GLAUCOMA
     Dosage: 40 GRAM, FREQUENCE: DAILY), OPTHALMIC
     Route: 047

REACTIONS (1)
  - DRUG HYPERSENSITIVITY [None]
